FAERS Safety Report 6071454-2 (Version None)
Quarter: 2009Q1

REPORT INFORMATION
  Report Type: 
  Country: None (occurrence: None)
  Receive Date: 20090204
  Receipt Date: 20081015
  Transmission Date: 20090719
  Serious: Yes (Other)
  Sender: FDA-Public Use
  Company Number: 549790

PATIENT
  Age: 78 Year
  Sex: Female
  Weight: 151 kg

DRUGS (1)
  1. BONIVA [Suspect]
     Indication: OSTEOPOROSIS
     Dosage: 3 MG 1 PER 3 MONTH INTRAVENOUS
     Route: 042
     Dates: start: 20070613

REACTIONS (1)
  - INJECTION SITE PHLEBITIS [None]
